FAERS Safety Report 6983977-X (Version None)
Quarter: 2010Q3

REPORT INFORMATION
  Report Type: 
  Country: None (occurrence: None)
  Receive Date: 20100915
  Receipt Date: 20090410
  Transmission Date: 20110219
  Serious: No
  Sender: FDA-Public Use
  Company Number: US-WYE-H08941409

PATIENT
  Age: 66 Year
  Sex: Male
  Weight: 106.69 kg

DRUGS (2)
  1. ADVIL LIQUI-GELS [Suspect]
     Indication: HEADACHE
     Dosage: 1 TABLET AS NEEDED
     Route: 048
     Dates: start: 20090201, end: 20090407
  2. ADVIL LIQUI-GELS [Suspect]
     Indication: PYREXIA

REACTIONS (4)
  - HYPERSENSITIVITY [None]
  - RASH ERYTHEMATOUS [None]
  - RASH MACULAR [None]
  - RASH PAPULAR [None]
